FAERS Safety Report 15317636 (Version 7)
Quarter: 2019Q1

REPORT INFORMATION
  Report Type: Spontaneous
  Country: US (occurrence: US)
  Receive Date: 20180824
  Receipt Date: 20190130
  Transmission Date: 20190417
  Serious: Yes (Death, Hospitalization)
  Sender: FDA-Public Use
  Company Number: US-ACTELION-A-NJ2018-171034

PATIENT
  Age: 66 Year
  Sex: Female

DRUGS (21)
  1. PROAIR HFA [Concomitant]
     Active Substance: ALBUTEROL SULFATE
     Dosage: 1-2 PUFFS , Q4HRS, PRN
  2. FERROUS GLUCONATE [Concomitant]
     Active Substance: FERROUS GLUCONATE
     Dosage: 324 MG, QD
  3. OXYGEN. [Concomitant]
     Active Substance: OXYGEN
  4. OPSUMIT [Suspect]
     Active Substance: MACITENTAN
     Indication: PULMONARY ARTERIAL HYPERTENSION
     Dosage: 10 MG, QD
     Route: 048
     Dates: start: 20180227, end: 20181228
  5. PANTOPRAZOLE SODIUM. [Concomitant]
     Active Substance: PANTOPRAZOLE SODIUM
     Dosage: 20 MG, QD
  6. PANTOPRAZOLE SODIUM. [Concomitant]
     Active Substance: PANTOPRAZOLE SODIUM
     Dosage: 40 UNK, UNK
  7. VITAMINS NOS [Concomitant]
     Active Substance: VITAMINS
     Dosage: 1 TAB ONCE DAILY
  8. XARELTO [Concomitant]
     Active Substance: RIVAROXABAN
     Dosage: 20 MG, QD
  9. NORCO [Concomitant]
     Active Substance: ACETAMINOPHEN\HYDROCODONE BITARTRATE
     Dosage: 7.5MG/325MG, PRN/Q6HRS
  10. REVATIO [Concomitant]
     Active Substance: SILDENAFIL CITRATE
     Dosage: 20 MG, TID
  11. KLOR-CON [Concomitant]
     Active Substance: POTASSIUM CHLORIDE
     Dosage: 40 MEQ, BID
  12. FUROSEMIDE. [Concomitant]
     Active Substance: FUROSEMIDE
     Dosage: 100 MG, QD
  13. FUROSEMIDE. [Concomitant]
     Active Substance: FUROSEMIDE
     Dosage: 20 UNK, UNK
  14. TORSEMIDE. [Concomitant]
     Active Substance: TORSEMIDE
     Dosage: 100 MG, QD
  15. METOPROLOL TARTRATE. [Concomitant]
     Active Substance: METOPROLOL TARTRATE
     Dosage: 25 MG, BID
  16. METOLAZONE. [Concomitant]
     Active Substance: METOLAZONE
     Dosage: 10 MG, QD
  17. METOLAZONE. [Concomitant]
     Active Substance: METOLAZONE
     Dosage: 5 UNK, UNK
  18. FUROSEMIDE. [Concomitant]
     Active Substance: FUROSEMIDE
     Dosage: 80 MG, UNK
  19. DILTIAZEM. [Concomitant]
     Active Substance: DILTIAZEM
     Dosage: 120 MG, QD
  20. HYDROCODONE [Concomitant]
     Active Substance: HYDROCODONE
     Dosage: 7.5 MG, PRN
  21. IPRATROPIUM BROMIDE AND ALBUTEROL SULFATE [Concomitant]
     Active Substance: ALBUTEROL SULFATE\IPRATROPIUM BROMIDE
     Dosage: 0.5-2.5 MG/3ML
     Route: 055

REACTIONS (26)
  - Urinary tract infection [Not Recovered/Not Resolved]
  - Blood count abnormal [Not Recovered/Not Resolved]
  - Pancytopenia [Recovering/Resolving]
  - Hypokalaemia [Recovering/Resolving]
  - Lymphoedema [Recovering/Resolving]
  - Asthenia [Recovering/Resolving]
  - Unresponsive to stimuli [Recovering/Resolving]
  - Electrolyte imbalance [Recovering/Resolving]
  - Death [Fatal]
  - Peripheral swelling [Recovering/Resolving]
  - Hypoxia [Recovering/Resolving]
  - Hypercapnia [Recovering/Resolving]
  - Blood albumin decreased [Recovering/Resolving]
  - Metabolic alkalosis [Recovering/Resolving]
  - Fall [Recovering/Resolving]
  - Blood potassium decreased [Recovering/Resolving]
  - Presyncope [Unknown]
  - Wound [Not Recovered/Not Resolved]
  - Palpitations [Recovering/Resolving]
  - Dizziness [Recovering/Resolving]
  - Respiratory failure [Recovering/Resolving]
  - Transfusion [Recovering/Resolving]
  - Gait disturbance [Recovering/Resolving]
  - Mental status changes [Recovering/Resolving]
  - Myelodysplastic syndrome [Recovering/Resolving]
  - Blood chloride decreased [Recovering/Resolving]

NARRATIVE: CASE EVENT DATE: 20180313
